FAERS Safety Report 20514507 (Version 1)
Quarter: 2022Q1

REPORT INFORMATION
  Report Type: Spontaneous
  Country: SA (occurrence: SA)
  Receive Date: 20220224
  Receipt Date: 20220224
  Transmission Date: 20220423
  Serious: Yes (Death)
  Sender: FDA-Public Use
  Company Number: SA-SA-SAC20220222000281

PATIENT
  Age: 4 Month

DRUGS (1)
  1. ALDURAZYME [Suspect]
     Active Substance: LARONIDASE
     Indication: Mucopolysaccharidosis
     Dosage: 2 DF (2 VIALS/WEEKS)
     Route: 042

REACTIONS (1)
  - Disease progression [Fatal]
